FAERS Safety Report 8716432 (Version 3)
Quarter: 2013Q4

REPORT INFORMATION
  Report Type: Spontaneous
  Country: US (occurrence: US)
  Receive Date: 20120810
  Receipt Date: 20131101
  Transmission Date: 20140711
  Serious: No
  Sender: FDA-Public Use
  Company Number: US-009507513-1207USA011718

PATIENT
  Age: 68 Year
  Sex: Male

DRUGS (4)
  1. JANUMET [Suspect]
     Indication: TYPE 2 DIABETES MELLITUS
     Dosage: 50/500 MILLIGRAMS
     Route: 048
     Dates: start: 20120726
  2. PLAVIX [Concomitant]
  3. ZETIA [Concomitant]
  4. LIPITOR [Concomitant]
     Dosage: UNK

REACTIONS (3)
  - Haematochezia [Recovered/Resolved]
  - Vomiting [Recovered/Resolved]
  - Headache [Recovered/Resolved]
